FAERS Safety Report 9772158 (Version 1)
Quarter: 2013Q3

REPORT INFORMATION
  Report Type: Spontaneous
  Country: US (occurrence: None)
  Receive Date: 20130823
  Receipt Date: 20130823
  Transmission Date: 20140515
  Serious: Yes (Hospitalization)
  Sender: FDA-Public Use
  Company Number: 2005US-01169

PATIENT
  Age: 14 Month
  Sex: Female

DRUGS (4)
  1. EUCALYPTINE PHOLCODINE [Suspect]
     Indication: BRONCHITIS
     Dosage: 13 SUPPOSITORIES TOTAL
     Route: 054
  2. CAMPHOR [Suspect]
     Indication: BRONCHITIS
  3. CINEOLE [Suspect]
     Indication: BRONCHITIS
  4. PHOLCODINE [Suspect]
     Indication: BRONCHITIS

REACTIONS (5)
  - Somnolence [None]
  - Hypotension [None]
  - Miosis [None]
  - Hypoglycaemia [None]
  - Metabolic acidosis [None]
